FAERS Safety Report 19868164 (Version 1)
Quarter: 2021Q3

REPORT INFORMATION
  Report Type: Spontaneous
  Country: US (occurrence: US)
  Receive Date: 20210922
  Receipt Date: 20210922
  Transmission Date: 20211014
  Serious: No
  Sender: FDA-Public Use
  Company Number: US-UNICHEM PHARMACEUTICALS (USA) INC-UCM202009-001088

PATIENT
  Sex: Male

DRUGS (1)
  1. CLONIDINE HCL [Suspect]
     Active Substance: CLONIDINE HYDROCHLORIDE
     Indication: ATTENTION DEFICIT HYPERACTIVITY DISORDER

REACTIONS (1)
  - Cough [Unknown]
